FAERS Safety Report 5328364-5 (Version None)
Quarter: 2007Q2

REPORT INFORMATION
  Report Type: 
  Country: None (occurrence: None)
  Receive Date: 20070515
  Receipt Date: 20070515
  Transmission Date: 20071010
  Serious: Yes (Death)
  Sender: FDA-Public Use
  Company Number: None

PATIENT
  Sex: Male

DRUGS (2)
  1. CAMPATH [Suspect]
     Dosage: 68/20 DAILY IV DRIP
     Route: 041
     Dates: start: 20070320, end: 20070324
  2. BUSULFAN [Suspect]
     Dosage: 448MGX2DAYS 436M X 2DAYS DAILY IV DRIP
     Route: 041
     Dates: start: 20070321, end: 20070324

REACTIONS (12)
  - BLOOD CREATININE INCREASED [None]
  - BLOOD POTASSIUM INCREASED [None]
  - BLOOD UREA INCREASED [None]
  - GALLBLADDER DISORDER [None]
  - HAEMATOCRIT DECREASED [None]
  - HAEMOGLOBIN DECREASED [None]
  - NAUSEA [None]
  - PLATELET COUNT DECREASED [None]
  - PYREXIA [None]
  - VENOOCCLUSIVE LIVER DISEASE [None]
  - VOMITING [None]
  - WHITE BLOOD CELL COUNT DECREASED [None]
